FAERS Safety Report 10158365 (Version 1)
Quarter: 2014Q2

REPORT INFORMATION
  Report Type: Spontaneous
  Country: US (occurrence: US)
  Receive Date: 20140507
  Receipt Date: 20140507
  Transmission Date: 20141212
  Serious: Yes (Other)
  Sender: FDA-Public Use
  Company Number: US-CUBIST PHARMACEUTICALS, INC.-2014CBST000627

PATIENT
  Sex: 0

DRUGS (3)
  1. CUBICIN [Suspect]
     Indication: CELLULITIS
     Dosage: 950 MG, QD
     Route: 042
     Dates: start: 20140413, end: 20140418
  2. CUBICIN [Suspect]
     Dosage: 5.4 MG/KG, QD
     Route: 042
     Dates: start: 20140413, end: 20140418
  3. HEPARIN [Concomitant]
     Indication: THROMBOSIS PROPHYLAXIS
     Dosage: UNK UNK, UNK
     Route: 058
     Dates: start: 20140409

REACTIONS (2)
  - Thrombosis in device [Recovered/Resolved]
  - Infusion site erythema [Recovered/Resolved]
